FAERS Safety Report 15256461 (Version 2)
Quarter: 2018Q4

REPORT INFORMATION
  Report Type: Report from Study
  Country: JP (occurrence: JP)
  Receive Date: 20180808
  Receipt Date: 20181231
  Transmission Date: 20190204
  Serious: Yes (Other)
  Sender: FDA-Public Use
  Company Number: JP-SHIONOGI, INC.-2018000769

PATIENT
  Age: 70 Year
  Sex: Female

DRUGS (5)
  1. MULPLETA [Suspect]
     Active Substance: LUSUTROMBOPAG
     Indication: THROMBOCYTOPENIA
     Dosage: 3 MG, QD
     Route: 048
     Dates: start: 20170625, end: 20170701
  2. EPIRUBICIN HYDROCHLORIDE. [Suspect]
     Active Substance: EPIRUBICIN HYDROCHLORIDE
     Indication: HEPATOCELLULAR CARCINOMA
     Dosage: 40 MG, QD
     Route: 042
     Dates: start: 20170704, end: 20170929
  3. REBAMIPIDE [Concomitant]
     Active Substance: REBAMIPIDE
     Indication: PROPHYLAXIS
     Dosage: 300 MG, QD
     Route: 048
     Dates: start: 20170708, end: 20170711
  4. IA-CALL [Suspect]
     Active Substance: CISPLATIN
     Indication: HEPATOCELLULAR CARCINOMA
     Dosage: 50 MG, QD
     Route: 013
     Dates: start: 20170704, end: 20170704
  5. ZINC. [Concomitant]
     Active Substance: ZINC
     Indication: HYPOZINCAEMIA
     Dosage: 50 MG, QD
     Route: 048
     Dates: start: 20170806, end: 20171001

REACTIONS (2)
  - Pancytopenia [Recovered/Resolved]
  - Hypozincaemia [Recovering/Resolving]

NARRATIVE: CASE EVENT DATE: 20170703
